FAERS Safety Report 4268260-8 (Version None)
Quarter: 2004Q1

REPORT INFORMATION
  Report Type: 
  Country: None (occurrence: None)
  Receive Date: 20040112
  Receipt Date: 20031118
  Transmission Date: 20041129
  Serious: Yes (Life-Threatening, Hospitalization, Other)
  Sender: FDA-Public Use
  Company Number: JP-BRISTOL-MYERS SQUIBB COMPANY-12444295

PATIENT
  Age: 75 Year
  Sex: Male

DRUGS (9)
  1. GATIFLO [Suspect]
     Indication: URINARY TRACT INFECTION
     Route: 048
     Dates: start: 20031114, end: 20031115
  2. MYSTAN [Concomitant]
     Route: 048
     Dates: start: 20031029
  3. ENALAPRIL MALEATE [Concomitant]
     Route: 048
     Dates: start: 20030512
  4. AMLODIN [Concomitant]
     Route: 048
     Dates: start: 20030512
  5. VASOLAN [Concomitant]
     Route: 048
     Dates: start: 20030801
  6. RYTHMODAN R [Concomitant]
     Route: 048
     Dates: start: 20030826
  7. DIGOXIN [Concomitant]
     Route: 048
     Dates: start: 20030516
  8. LAC-B [Concomitant]
     Route: 048
     Dates: start: 20030519
  9. CEREKINON [Concomitant]
     Route: 048
     Dates: start: 20030519

REACTIONS (5)
  - BLOOD GLUCOSE INCREASED [None]
  - DRUG INTERACTION [None]
  - HYPOGLYCAEMIA [None]
  - IMPAIRED INSULIN SECRETION [None]
  - SOMNOLENCE [None]
